FAERS Safety Report 15313555 (Version 1)
Quarter: 2018Q3

REPORT INFORMATION
  Report Type: Spontaneous
  Country: MT (occurrence: MT)
  Receive Date: 20180824
  Receipt Date: 20180824
  Transmission Date: 20181010
  Serious: Yes (Death, Life-Threatening, Hospitalization, Disabling, Congenital Anomaly, Other)
  Sender: FDA-Public Use
  Company Number: MT-TEVA-2018-MT-946206

PATIENT
  Sex: Female
  Weight: 43 kg

DRUGS (2)
  1. PAROXETINE. [Suspect]
     Active Substance: PAROXETINE
     Route: 065
     Dates: start: 20180201, end: 20180723
  2. LORANS [Concomitant]
     Active Substance: LORAZEPAM
     Dates: start: 20180201, end: 20180723

REACTIONS (3)
  - Headache [Unknown]
  - Lethargy [Recovering/Resolving]
  - Fatigue [Fatal]
